FAERS Safety Report 17203179 (Version 9)
Quarter: 2020Q1

REPORT INFORMATION
  Report Type: Spontaneous
  Country: AU (occurrence: AU)
  Receive Date: 20191226
  Receipt Date: 20200220
  Transmission Date: 20200409
  Serious: Yes (Other)
  Sender: FDA-Public Use
  Company Number: AU-PFIZER INC-2019526877

PATIENT
  Age: 59 Year
  Sex: Female

DRUGS (2)
  1. DBL PETHIDINE HYDROCHLORIDE [Suspect]
     Active Substance: MEPERIDINE HYDROCHLORIDE
     Dosage: UNK
  2. MORPHINE HCL [Suspect]
     Active Substance: MORPHINE HYDROCHLORIDE
     Dosage: UNK

REACTIONS (11)
  - Haemorrhage [Unknown]
  - Drug hypersensitivity [Unknown]
  - Weight decreased [Unknown]
  - Drug ineffective [Unknown]
  - Withdrawal syndrome [Unknown]
  - Bedridden [Unknown]
  - Sepsis [Unknown]
  - Loss of consciousness [Unknown]
  - Head injury [Unknown]
  - Malaise [Unknown]
  - Gait inability [Unknown]
